FAERS Safety Report 6916325-1 (Version None)
Quarter: 2010Q3

REPORT INFORMATION
  Report Type: 
  Country: None (occurrence: None)
  Receive Date: 20100810
  Receipt Date: 20100729
  Transmission Date: 20110219
  Serious: Yes (Other)
  Sender: FDA-Public Use
  Company Number: US-PFIZER INC-2010095848

PATIENT
  Sex: Female
  Weight: 82.5 kg

DRUGS (5)
  1. TIKOSYN [Suspect]
     Indication: ARRHYTHMIA
     Dosage: 500 UG, 2X/DAY
     Route: 048
     Dates: start: 20100713, end: 20100728
  2. PERCOCET [Concomitant]
     Indication: PAIN
     Dosage: 10/325
     Route: 048
     Dates: start: 20100501
  3. CARISOPRODOL [Concomitant]
     Indication: MUSCLE RELAXANT THERAPY
     Dosage: 350 MG, 2X/DAY
     Route: 048
     Dates: start: 20100501
  4. OMEPRAZOLE [Concomitant]
     Indication: GASTROOESOPHAGEAL REFLUX DISEASE
     Dosage: 20 MG, AS NEEDED
     Route: 048
     Dates: start: 20100501
  5. ACETYLSALICYLIC ACID [Concomitant]
     Indication: CARDIAC DISORDER
     Dosage: 325 MG, 1X/DAY
     Route: 048
     Dates: start: 20100501

REACTIONS (5)
  - BLOOD PRESSURE INCREASED [None]
  - DRUG SCREEN POSITIVE [None]
  - FEELING JITTERY [None]
  - HYPERHIDROSIS [None]
  - NERVOUSNESS [None]
